FAERS Safety Report 9321640 (Version 3)
Quarter: 2013Q2

REPORT INFORMATION
  Report Type: Report from Study
  Country: US (occurrence: US)
  Receive Date: 20130531
  Receipt Date: 20130614
  Transmission Date: 20140414
  Serious: Yes (Hospitalization, Other)
  Sender: FDA-Public Use
  Company Number: US-ABBOTT-13P-163-1094025-00

PATIENT
  Age: 33 Year
  Sex: Female

DRUGS (11)
  1. HUMIRA [Suspect]
     Indication: CROHN^S DISEASE
     Dates: start: 201302
  2. ALIGN [Concomitant]
     Indication: PRODUCT USED FOR UNKNOWN INDICATION
  3. BENTYL [Concomitant]
     Indication: PRODUCT USED FOR UNKNOWN INDICATION
  4. IRON W/FOLIC ACID [Concomitant]
     Indication: PRODUCT USED FOR UNKNOWN INDICATION
  5. OMEPRAZOLE [Concomitant]
     Indication: GASTROOESOPHAGEAL REFLUX DISEASE
  6. ZOFRAN [Concomitant]
     Indication: NAUSEA
  7. MEGASTROL [Concomitant]
     Indication: APPETITE DISORDER
  8. PREDNISONE [Concomitant]
     Indication: PRODUCT USED FOR UNKNOWN INDICATION
  9. PREDNISONE [Concomitant]
  10. ALBUTEROL [Concomitant]
     Indication: ASTHMA
     Dosage: INHALER, EVERY FOUR TO SIX HOURS
  11. ALBUTEROL [Concomitant]
     Indication: ASTHMA
     Dosage: NEBULIZER

REACTIONS (8)
  - Anaemia [Unknown]
  - Abdominal pain upper [Recovered/Resolved]
  - Injection site pain [Recovered/Resolved]
  - Influenza like illness [Unknown]
  - Chills [Unknown]
  - Feeling hot [Unknown]
  - Decreased appetite [Unknown]
  - Crohn^s disease [Not Recovered/Not Resolved]
